FAERS Safety Report 7960940-3 (Version None)
Quarter: 2011Q4

REPORT INFORMATION
  Report Type: 
  Country: None (occurrence: None)
  Receive Date: 20111201
  Receipt Date: 20111201
  Transmission Date: 20120403
  Serious: Yes (Other)
  Sender: FDA-Public Use
  Company Number: None

PATIENT
  Age: 69 Year
  Sex: Female
  Weight: 81.6475 kg

DRUGS (2)
  1. OXYCODONE HCL [Suspect]
     Indication: KNEE ARTHROPLASTY
     Dosage: 100 MG 2 AM 2 PM
     Dates: start: 20111115
  2. OXYCODONE HCL [Suspect]
     Indication: PROCEDURAL PAIN
     Dosage: 100 MG 2 AM 2 PM
     Dates: start: 20111115

REACTIONS (3)
  - SLUGGISHNESS [None]
  - DRUG INEFFECTIVE [None]
  - PRODUCT FORMULATION ISSUE [None]
